FAERS Safety Report 10922826 (Version 3)
Quarter: 2015Q3

REPORT INFORMATION
  Report Type: Spontaneous
  Country: FR (occurrence: FR)
  Receive Date: 20150317
  Receipt Date: 20150806
  Transmission Date: 20151125
  Serious: Yes (Other)
  Sender: FDA-Public Use
  Company Number: FR-TEVA-547486USA

PATIENT
  Age: 67 Year
  Sex: Male

DRUGS (6)
  1. LEVACT [Suspect]
     Active Substance: BENDAMUSTINE HYDROCHLORIDE
     Indication: LYMPHOMA
     Route: 042
     Dates: start: 20150119, end: 20150120
  2. EMEND [Suspect]
     Active Substance: APREPITANT
     Indication: ANTIEMETIC SUPPORTIVE CARE
     Dosage: UNK UNK, UNKNOWN FREQ.
     Route: 048
     Dates: start: 20150119, end: 20150127
  3. ZOPHREN                            /00955301/ [Suspect]
     Active Substance: ONDANSETRON
     Indication: ANTIEMETIC SUPPORTIVE CARE
     Route: 042
     Dates: start: 20150119, end: 20150125
  4. ETOPOSIDE. [Suspect]
     Active Substance: ETOPOSIDE
     Indication: LYMPHOMA
     Route: 042
     Dates: start: 20150121, end: 20150124
  5. ARACYTINE [Suspect]
     Active Substance: CYTARABINE
     Indication: LYMPHOMA
     Route: 042
     Dates: start: 20150121, end: 20150124
  6. SOLU-MEDROL [Suspect]
     Active Substance: METHYLPREDNISOLONE SODIUM SUCCINATE
     Indication: ANTIEMETIC SUPPORTIVE CARE
     Route: 042
     Dates: start: 20150119, end: 20150126

REACTIONS (1)
  - Atrial fibrillation [Recovered/Resolved]

NARRATIVE: CASE EVENT DATE: 20150122
